FAERS Safety Report 7719572-4 (Version None)
Quarter: 2011Q3

REPORT INFORMATION
  Report Type: 
  Country: None (occurrence: None)
  Receive Date: 20110830
  Receipt Date: 20110817
  Transmission Date: 20111222
  Serious: Yes (Death, Life-Threatening, Other)
  Sender: FDA-Public Use
  Company Number: US-BAXTER-2009BH017801

PATIENT
  Age: 83 Year
  Sex: Male

DRUGS (10)
  1. TYLENOL-500 [Concomitant]
     Indication: PRODUCT USED FOR UNKNOWN INDICATION
     Route: 065
  2. HEPARIN SODIUM INJECTION [Suspect]
     Indication: VASCULAR GRAFT
     Route: 065
     Dates: start: 20080512, end: 20080512
  3. HEPARIN SODIUM INJECTION [Suspect]
     Route: 065
     Dates: start: 20080510, end: 20080510
  4. ASPIRIN [Concomitant]
     Indication: PRODUCT USED FOR UNKNOWN INDICATION
     Route: 065
  5. HEPARIN SODIUM INJECTION [Suspect]
     Route: 065
  6. HEPARIN SODIUM 1,000 UNITS AND SODIUM CHLORIDE 0.9% [Suspect]
     Indication: PRODUCT USED FOR UNKNOWN INDICATION
     Route: 065
  7. HEPARIN SODIUM INJECTION [Suspect]
     Route: 065
  8. HEPARIN SODIUM 5,000 UNITS IN DEXTROSE 5% [Suspect]
     Indication: PRODUCT USED FOR UNKNOWN INDICATION
     Route: 042
     Dates: start: 20080501
  9. HEPARIN SODIUM INJECTION [Suspect]
     Indication: CATHETERISATION CARDIAC
     Route: 065
     Dates: start: 20080512, end: 20080512
  10. HEPARIN SODIUM INJECTION [Suspect]
     Route: 065
     Dates: start: 20080510, end: 20080510

REACTIONS (16)
  - HYPOXIA [None]
  - PULMONARY OEDEMA [None]
  - TACHYCARDIA [None]
  - CEREBROVASCULAR ACCIDENT [None]
  - PYREXIA [None]
  - HEPATIC FAILURE [None]
  - HYPOTENSION [None]
  - THROMBOCYTOPENIA [None]
  - PERIPHERAL ISCHAEMIA [None]
  - ENCEPHALOPATHY [None]
  - CEREBRAL INFARCTION [None]
  - SEPSIS [None]
  - RESPIRATORY DISTRESS [None]
  - EMBOLISM [None]
  - RENAL FAILURE [None]
  - RESPIRATORY FAILURE [None]
